FAERS Safety Report 7417847-X (Version None)
Quarter: 2011Q2

REPORT INFORMATION
  Report Type: 
  Country: None (occurrence: None)
  Receive Date: 20110415
  Receipt Date: 20110408
  Transmission Date: 20111010
  Serious: Yes (Other)
  Sender: FDA-Public Use
  Company Number: GB-PFIZER INC-2011078832

PATIENT
  Age: 69 Year
  Sex: Male

DRUGS (1)
  1. TOLTERODINE TARTRATE [Suspect]
     Dosage: 2 MG, UNK

REACTIONS (1)
  - ILEOSTOMY [None]
